FAERS Safety Report 5585179-0 (Version None)
Quarter: 2008Q1

REPORT INFORMATION
  Report Type: 
  Country: None (occurrence: None)
  Receive Date: 20080108
  Receipt Date: 20080108
  Transmission Date: 20080703
  Serious: Yes (Other)
  Sender: FDA-Public Use
  Company Number: None

PATIENT
  Age: 66 Year
  Sex: Male

DRUGS (11)
  1. VYTORIN [Suspect]
     Dates: start: 20061122, end: 20070514
  2. GLUCOPHAGE [Concomitant]
  3. ACTOS [Concomitant]
  4. AMARYL [Concomitant]
  5. ACIPHEX [Concomitant]
  6. LASIX [Concomitant]
  7. INDERAL [Concomitant]
  8. ALDACTONE [Concomitant]
  9. PRILOSEC [Concomitant]
  10. MULTI-VITAMIN [Concomitant]
  11. ASCORBIC ACID [Concomitant]

REACTIONS (10)
  - ALCOHOL USE [None]
  - CARDIAC FAILURE CONGESTIVE [None]
  - ENCEPHALOPATHY [None]
  - GENERAL PHYSICAL HEALTH DETERIORATION [None]
  - HYPOTENSION [None]
  - JAUNDICE [None]
  - LIVER INJURY [None]
  - MALAISE [None]
  - NAUSEA [None]
  - RENAL FAILURE [None]
